FAERS Safety Report 5100792-2 (Version None)
Quarter: 2006Q3

REPORT INFORMATION
  Report Type: 
  Country: None (occurrence: None)
  Receive Date: 20060906
  Receipt Date: 20060815
  Transmission Date: 20061208
  Serious: Yes (Other)
  Sender: FDA-Public Use
  Company Number: 2006BH012849

PATIENT
  Age: 78 Year
  Sex: Female

DRUGS (1)
  1. CEFTRIAXONE [Suspect]
     Indication: MENINGITIS
     Dosage: 2 GM; IV
     Route: 042

REACTIONS (4)
  - MYOCLONUS [None]
  - NEUROLOGICAL SYMPTOM [None]
  - SOMNOLENCE [None]
  - STATUS EPILEPTICUS [None]
